FAERS Safety Report 15825368 (Version 2)
Quarter: 2019Q1

REPORT INFORMATION
  Report Type: Spontaneous
  Country: AT (occurrence: AT)
  Receive Date: 20190115
  Receipt Date: 20190214
  Transmission Date: 20190417
  Serious: Yes (Other)
  Sender: FDA-Public Use
  Company Number: AT-ELI_LILLY_AND_COMPANY-AT201901005182

PATIENT
  Age: 67 Year
  Sex: Male

DRUGS (47)
  1. BUPRENORPHINE. [Suspect]
     Active Substance: BUPRENORPHINE
     Dosage: 140 UG, UNKNOWN
     Route: 062
     Dates: start: 20161014, end: 20161102
  2. EFFENTORA [Suspect]
     Active Substance: FENTANYL CITRATE
     Dosage: 400 MCG, UP TO 3 TIMES DAILY
     Route: 065
     Dates: start: 20150824, end: 20150828
  3. DRONABINOL. [Suspect]
     Active Substance: DRONABINOL
     Indication: PRODUCT USED FOR UNKNOWN INDICATION
     Dosage: 6 GTT, 3 TIMES
     Route: 065
     Dates: start: 201308, end: 201309
  4. HYDAL [Suspect]
     Active Substance: HYDROMORPHONE HYDROCHLORIDE
     Indication: PRODUCT USED FOR UNKNOWN INDICATION
     Dosage: 5.2 MG, UP TO 4 TIMES DAILY
     Route: 065
     Dates: start: 201308, end: 201309
  5. QUETIAPINE. [Suspect]
     Active Substance: QUETIAPINE
     Dosage: 100 MG, EACH EVENING (0-0-1)
     Route: 048
  6. METOCLOPRAMIDE. [Suspect]
     Active Substance: METOCLOPRAMIDE
     Indication: PRODUCT USED FOR UNKNOWN INDICATION
     Dosage: UNK UNK, UNKNOWN
     Route: 065
     Dates: start: 201308, end: 201309
  7. SEROQUEL [Suspect]
     Active Substance: QUETIAPINE FUMARATE
     Dosage: 25 MG, 0-0-0-1
     Route: 065
  8. LEXOTANIL [Suspect]
     Active Substance: BROMAZEPAM
     Indication: PRODUCT USED FOR UNKNOWN INDICATION
     Dosage: 3 MG, 1/2-0-0
     Route: 065
  9. DULOXETINE HYDROCHLORIDE. [Suspect]
     Active Substance: DULOXETINE HYDROCHLORIDE
     Indication: PRODUCT USED FOR UNKNOWN INDICATION
     Dosage: 60 MG, 2-0-0
     Route: 065
  10. EFFENTORA [Suspect]
     Active Substance: FENTANYL CITRATE
     Indication: PRODUCT USED FOR UNKNOWN INDICATION
     Dosage: 100 UG, 4 TIMES DAILY
     Route: 065
     Dates: start: 201308, end: 201309
  11. HYDAL [Suspect]
     Active Substance: HYDROMORPHONE HYDROCHLORIDE
     Dosage: 2.6 MG, UNKNOWN
     Route: 065
  12. LYRICA [Suspect]
     Active Substance: PREGABALIN
     Dosage: 75 MG, 1-1-1
     Route: 065
  13. DULOXETINE HYDROCHLORIDE. [Suspect]
     Active Substance: DULOXETINE HYDROCHLORIDE
     Dosage: 60 MG, 1-0-1
     Route: 065
     Dates: start: 201308, end: 201309
  14. EFFENTORA [Suspect]
     Active Substance: FENTANYL CITRATE
     Dosage: 400 UG,  2-3 TIMES DAILY
     Route: 065
  15. SUBOXONE [Suspect]
     Active Substance: BUPRENORPHINE HYDROCHLORIDE\NALOXONE HYDROCHLORIDE
     Dosage: 12 MG - 0 -  4 MG
     Route: 065
     Dates: start: 201601, end: 201601
  16. SUBOXONE [Suspect]
     Active Substance: BUPRENORPHINE HYDROCHLORIDE\NALOXONE HYDROCHLORIDE
     Dosage: 8 MG / 2 MG, UNK, 1-0-0
     Route: 048
  17. HYDAL [Suspect]
     Active Substance: HYDROMORPHONE HYDROCHLORIDE
     Dosage: 5.2 MG, 2-3 TIMES DAILY
     Route: 065
     Dates: start: 201308, end: 201309
  18. PANTOPRAZOLE [Suspect]
     Active Substance: PANTOPRAZOLE
     Indication: PRODUCT USED FOR UNKNOWN INDICATION
     Dosage: 40 MG, 1-0-0
     Route: 065
  19. PANTOPRAZOLE [Suspect]
     Active Substance: PANTOPRAZOLE
     Dosage: 40 MG, 1-0-0
     Route: 065
     Dates: start: 201308, end: 201309
  20. ONDANSETRON [Suspect]
     Active Substance: ONDANSETRON
     Indication: PRODUCT USED FOR UNKNOWN INDICATION
     Dosage: UNK UNK, UNKNOWN
     Route: 065
  21. VITAMINS NOS [Suspect]
     Active Substance: VITAMINS
     Indication: PRODUCT USED FOR UNKNOWN INDICATION
     Dosage: UNK UNK, UNKNOWN
     Route: 065
  22. FENTANYL. [Suspect]
     Active Substance: FENTANYL
     Indication: PRODUCT USED FOR UNKNOWN INDICATION
     Dosage: 600 UG, BID
     Route: 065
  23. OMEGAVEN (URTICA SPP. EXTRACT) [Suspect]
     Active Substance: HERBALS
     Indication: PRODUCT USED FOR UNKNOWN INDICATION
     Dosage: UNK UNK, UNKNOWN
     Route: 065
  24. DULOXETINE HYDROCHLORIDE. [Suspect]
     Active Substance: DULOXETINE HYDROCHLORIDE
     Dosage: 30 MG, BID (1-1-0)
     Route: 065
  25. SUBOXONE [Suspect]
     Active Substance: BUPRENORPHINE HYDROCHLORIDE\NALOXONE HYDROCHLORIDE
     Indication: PAIN
     Dosage: 8 MG / 2 MG (1 TIME 1 17:00)
     Route: 060
  26. SUBOXONE [Suspect]
     Active Substance: BUPRENORPHINE HYDROCHLORIDE\NALOXONE HYDROCHLORIDE
     Dosage: 2 MG / 0.5 MG UP TO 4 TIMES IN CASE OF PAIN ATTACK
     Route: 048
  27. HYDAL [Suspect]
     Active Substance: HYDROMORPHONE HYDROCHLORIDE
     Dosage: 4 MG, BID, 1-0-1
  28. QUETIAPINE. [Suspect]
     Active Substance: QUETIAPINE
     Indication: PRODUCT USED FOR UNKNOWN INDICATION
     Dosage: 25 MG, 0-0-1
     Route: 065
  29. DIPIDOLOR [Suspect]
     Active Substance: PIRITRAMIDE
     Indication: PRODUCT USED FOR UNKNOWN INDICATION
     Dosage: 15 MG, UNKNOWN
     Route: 065
  30. MIRTAZAPIN [Suspect]
     Active Substance: MIRTAZAPINE
     Indication: PRODUCT USED FOR UNKNOWN INDICATION
     Dosage: 30 MG, (0-0-0-1)
     Route: 065
  31. TEMESTA EXPIDET [Suspect]
     Active Substance: LORAZEPAM
     Dosage: 2.5 MG, UNKNOWN
     Route: 065
     Dates: start: 201308, end: 201309
  32. EFFENTORA [Suspect]
     Active Substance: FENTANYL CITRATE
     Dosage: 600 UG, UNK (8 TIMES)
     Route: 065
     Dates: start: 20161014, end: 20161102
  33. HYDAL [Suspect]
     Active Substance: HYDROMORPHONE HYDROCHLORIDE
     Dosage: 5.2 MG, UP TO 3 TIMES DAILY
     Route: 065
  34. BUPRENORPHINE. [Suspect]
     Active Substance: BUPRENORPHINE
     Dosage: 105 UG, UNKNOWN
     Route: 062
     Dates: start: 201308, end: 201309
  35. LYRICA [Suspect]
     Active Substance: PREGABALIN
     Indication: PRODUCT USED FOR UNKNOWN INDICATION
     Dosage: 75 MG, 0-0-1
     Route: 065
  36. SEROQUEL [Suspect]
     Active Substance: QUETIAPINE FUMARATE
     Indication: PRODUCT USED FOR UNKNOWN INDICATION
     Dosage: 100 MG, EACH EVENING (0-0-100 MG)
     Route: 065
     Dates: start: 20150824, end: 20150828
  37. PANTOPRAZOLE [Suspect]
     Active Substance: PANTOPRAZOLE
     Dosage: 40 MG, 1-0-1
     Route: 065
  38. CLONIDINE. [Suspect]
     Active Substance: CLONIDINE
     Indication: RESTLESSNESS
     Dosage: 0.15 MG, (1-0-1)
     Route: 065
  39. SUBOXONE [Suspect]
     Active Substance: BUPRENORPHINE HYDROCHLORIDE\NALOXONE HYDROCHLORIDE
     Dosage: 8 MG, DAILY (8 MG, DAILY (1 TIME/DAY PLUS ADDITIONAL 2 MG)
  40. BUPRENORPHINE. [Suspect]
     Active Substance: BUPRENORPHINE
     Indication: PRODUCT USED FOR UNKNOWN INDICATION
     Dosage: 70 UG, UNKNOWN
     Route: 062
     Dates: start: 20130826, end: 20130919
  41. BUPRENORPHINE. [Suspect]
     Active Substance: BUPRENORPHINE
     Dosage: 140 UG, UNKNOWN
     Route: 062
     Dates: start: 20150824, end: 20150828
  42. IMODIUM [Suspect]
     Active Substance: LOPERAMIDE HYDROCHLORIDE
     Indication: PRODUCT USED FOR UNKNOWN INDICATION
     Dosage: UNK UNK, AFTER EVERY LIQUID STOOL
     Route: 065
  43. CLONIDINE. [Suspect]
     Active Substance: CLONIDINE
     Dosage: 0.15 MG, WHEN RESTLESS 1 TIME/DAY
     Route: 065
  44. TEMESTA EXPIDET [Suspect]
     Active Substance: LORAZEPAM
     Indication: RESTLESSNESS
     Dosage: 2.5 MG, UNKNOWN
     Route: 065
  45. EFFENTORA [Suspect]
     Active Substance: FENTANYL CITRATE
     Dosage: 400 UG, 2 TABLETS
     Route: 065
     Dates: start: 20150824, end: 20150828
  46. EFFENTORA [Suspect]
     Active Substance: FENTANYL CITRATE
     Dosage: 800 MG, 3-4 TIMES DAILY
     Route: 065
  47. SUBOXONE [Suspect]
     Active Substance: BUPRENORPHINE HYDROCHLORIDE\NALOXONE HYDROCHLORIDE
     Dosage: 2 MG/ 0.5 MG  UP TO 6 TIMES DAILY
     Route: 065
     Dates: start: 201601, end: 201601

REACTIONS (9)
  - Tremor [Unknown]
  - Decreased appetite [Unknown]
  - Drug dependence [Unknown]
  - Abdominal pain [Unknown]
  - Vertigo [Unknown]
  - Nausea [Unknown]
  - Drug use disorder [Recovered/Resolved]
  - Diarrhoea [Unknown]
  - Depression [Unknown]
